FAERS Safety Report 21016088 (Version 1)
Quarter: 2022Q2

REPORT INFORMATION
  Report Type: Spontaneous
  Country: SE (occurrence: SE)
  Receive Date: 20220628
  Receipt Date: 20220628
  Transmission Date: 20220721
  Serious: Yes (Other)
  Sender: FDA-Public Use
  Company Number: None

PATIENT
  Age: 73 Year
  Sex: Female
  Weight: 67 kg

DRUGS (10)
  1. ROSUVASTATIN CALCIUM [Suspect]
     Active Substance: ROSUVASTATIN CALCIUM
     Indication: Lipids increased
     Dosage: 10 MG 1 TIME / DAY
     Route: 048
     Dates: start: 20200608, end: 20220210
  2. VAXZEVRIA [Suspect]
     Active Substance: AZD-1222
     Indication: Product used for unknown indication
     Dosage: DOS 1, SOLUTION FOR INJECTION,SUSPENSION
     Dates: start: 20210408
  3. LEVOTHYROXINE SODIUM [Concomitant]
     Active Substance: LEVOTHYROXINE SODIUM
     Dosage: 75 MICROGRAMS MON-FRI
     Route: 048
     Dates: start: 2004
  4. CANDESARTAN [Concomitant]
     Active Substance: CANDESARTAN
     Dosage: 32 MG 1 TIME / DAY
     Route: 048
     Dates: start: 2015
  5. JANUVIA [Concomitant]
     Active Substance: SITAGLIPTIN PHOSPHATE
     Dosage: 100 MG 1 TIME / DAY
     Route: 048
     Dates: start: 2015
  6. ASPIRIN [Concomitant]
     Active Substance: ASPIRIN
     Dosage: 75 MG 1 TIME / DAY
     Route: 048
     Dates: start: 202006
  7. EMPAGLIFLOZIN [Concomitant]
     Active Substance: EMPAGLIFLOZIN
     Dosage: 10 MG 1 TIME / DAY
     Route: 048
     Dates: start: 2015
  8. AMLODIPINE BESYLATE [Concomitant]
     Active Substance: AMLODIPINE BESYLATE
     Dosage: 5 MG 1 TIME / DAY
     Route: 048
     Dates: start: 2020
  9. METFORMIN HYDROCHLORIDE [Concomitant]
     Active Substance: METFORMIN HYDROCHLORIDE
     Dosage: 850 MG 3 TIMES / DAY
     Route: 048
     Dates: start: 20041115
  10. BISOPROLOL [Concomitant]
     Active Substance: BISOPROLOL
     Dosage: 2.5 MG 0.5 TIME / DAY
     Route: 048
     Dates: start: 2020

REACTIONS (2)
  - Pain in extremity [Recovered/Resolved]
  - Contusion [Recovered/Resolved]

NARRATIVE: CASE EVENT DATE: 20210415
